FAERS Safety Report 5909931-4 (Version None)
Quarter: 2008Q4

REPORT INFORMATION
  Report Type: 
  Country: None (occurrence: None)
  Receive Date: 20081006
  Receipt Date: 20081006
  Transmission Date: 20090506
  Serious: Yes (Hospitalization)
  Sender: FDA-Public Use
  Company Number: None

PATIENT
  Sex: Female
  Weight: 63.6 kg

DRUGS (3)
  1. CARBOPLATIN [Suspect]
     Dosage: 355 MG
  2. TAXOL [Suspect]
     Dosage: 298 MG
  3. NEULASTA [Suspect]
     Dosage: 6 MG

REACTIONS (11)
  - ABDOMINAL NEOPLASM [None]
  - ABDOMINAL PAIN UPPER [None]
  - ANXIETY [None]
  - CHOLELITHIASIS [None]
  - DEHYDRATION [None]
  - GALLBLADDER POLYP [None]
  - LYMPHADENOPATHY [None]
  - PANCREATIC CYST [None]
  - POSTOPERATIVE ADHESION [None]
  - SCAR [None]
  - SPLENIC NEOPLASM MALIGNANCY UNSPECIFIED [None]
